FAERS Safety Report 5854205-3 (Version None)
Quarter: 2008Q3

REPORT INFORMATION
  Report Type: 
  Country: None (occurrence: None)
  Receive Date: 20080822
  Receipt Date: 20080815
  Transmission Date: 20090109
  Serious: Yes (Hospitalization, Other)
  Sender: FDA-Public Use
  Company Number: US-TEVA-176063USA

PATIENT
  Age: 55 Year
  Sex: Female
  Weight: 86 kg

DRUGS (7)
  1. ONXOL [Suspect]
     Indication: BREAST CANCER
     Dosage: 80 MG/M2 WEEKLY
     Route: 042
  2. DEXAMETHASONE TAB [Concomitant]
     Indication: PREMEDICATION
  3. RADIOTHERAPY [Concomitant]
     Indication: BREAST CANCER
  4. ANTIBIOTICS [Concomitant]
     Indication: PNEUMONIA
  5. FLUOROURACIL [Concomitant]
     Indication: BREAST CANCER
     Route: 042
  6. EPIRUBICIN [Concomitant]
     Indication: BREAST CANCER
     Route: 042
  7. CYCLOPHOSPHAMIDE [Concomitant]
     Indication: BREAST CANCER
     Route: 042

REACTIONS (1)
  - SICKLE CELL ANAEMIA WITH CRISIS [None]
